FAERS Safety Report 25189134 (Version 2)
Quarter: 2025Q2

REPORT INFORMATION
  Report Type: Report from Study
  Country: US (occurrence: US)
  Receive Date: 20250411
  Receipt Date: 20250423
  Transmission Date: 20250716
  Serious: No
  Sender: IPSEN BIOPHARMACEUTICALS, INC.
  Company Number: US-IPSEN Group, Research and Development-2025-07979

PATIENT
  Age: 1 Year
  Sex: Male

DRUGS (3)
  1. BYLVAY [Suspect]
     Active Substance: ODEVIXIBAT
     Indication: Progressive familial intrahepatic cholestasis
     Route: 048
     Dates: start: 20250215
  2. RIFAMPIN [Concomitant]
     Active Substance: RIFAMPIN
  3. URSODIOL [Concomitant]
     Active Substance: URSODIOL

REACTIONS (1)
  - Pruritus [Not Recovered/Not Resolved]
